FAERS Safety Report 9387916 (Version 1)
Quarter: 2013Q3

REPORT INFORMATION
  Report Type: Spontaneous
  Country: US (occurrence: US)
  Receive Date: 20130708
  Receipt Date: 20130708
  Transmission Date: 20140515
  Serious: No
  Sender: FDA-Public Use
  Company Number: US-BAYER-2013-082920

PATIENT
  Age: 50 Year
  Sex: Female
  Weight: 81.63 kg

DRUGS (3)
  1. ALEVE TABLET [Suspect]
     Indication: ANALGESIC THERAPY
     Dosage: 4 DF, UNK
     Route: 048
  2. METFORMIN [Concomitant]
  3. CORTISONE [Concomitant]

REACTIONS (5)
  - Vomiting [Not Recovered/Not Resolved]
  - Dizziness [Not Recovered/Not Resolved]
  - Extra dose administered [None]
  - Drug ineffective [None]
  - Abdominal discomfort [Not Recovered/Not Resolved]
